FAERS Safety Report 23875000 (Version 1)
Quarter: 2024Q2

REPORT INFORMATION
  Report Type: Spontaneous
  Country: US (occurrence: None)
  Receive Date: 20240518
  Receipt Date: 20240518
  Transmission Date: 20240715
  Serious: No
  Sender: FDA-Public Use
  Company Number: None

PATIENT
  Age: 38 Year
  Sex: Female
  Weight: 73.35 kg

DRUGS (13)
  1. TIRZEPATIDE [Suspect]
     Active Substance: TIRZEPATIDE
     Indication: Weight decreased
     Dates: start: 20240426
  2. Nrf2 [Concomitant]
  3. COENZYME Q10 [Concomitant]
     Active Substance: DIETARY SUPPLEMENT\UBIDECARENONE
  4. VITAMIN C [Concomitant]
     Active Substance: ASCORBIC ACID
  5. METHYLCOBALAMIN [Concomitant]
     Active Substance: METHYLCOBALAMIN
  6. BEEF LIVER [Concomitant]
     Active Substance: BEEF LIVER
  7. ARTICHOKE [Concomitant]
     Active Substance: ARTICHOKE
  8. COLAGEN [Concomitant]
  9. ZINC [Concomitant]
     Active Substance: PYRITHIONE ZINC\ZINC\ZINC CHLORIDE
  10. NETTLE [Concomitant]
     Active Substance: URTICA DIOICA POLLEN
  11. MAGNESIUM [Concomitant]
     Active Substance: MAGNESIUM
  12. GABA [Concomitant]
     Active Substance: HOMEOPATHICS
  13. BARLEY GRASS [Concomitant]

REACTIONS (1)
  - Injection site inflammation [None]

NARRATIVE: CASE EVENT DATE: 20240510
